FAERS Safety Report 26184880 (Version 2)
Quarter: 2025Q4

REPORT INFORMATION
  Report Type: Spontaneous
  Country: US (occurrence: US)
  Receive Date: 20251222
  Receipt Date: 20251222
  Transmission Date: 20260118
  Serious: Yes (Death, Other)
  Sender: ROCHE
  Company Number: US-ROCHE-10000460438

PATIENT
  Age: 17 Year
  Sex: Female
  Weight: 222 kg

DRUGS (13)
  1. OCREVUS [Suspect]
     Active Substance: OCRELIZUMAB
     Indication: Multiple sclerosis
     Dosage: LAST OCREVUS PRIOR TO PREGNANCY ON MAR-2024, LAST OCREVUS DOSE WAS ON 27-APR-2025
  2. OXYBUTYNIN CHLORIDE [Concomitant]
     Active Substance: OXYBUTYNIN CHLORIDE
     Dosage: 10MG
  3. LASIX [Concomitant]
     Active Substance: FUROSEMIDE
     Dosage: 20MG
  4. spironolactate [Concomitant]
     Dosage: 12.5MG
  5. KETOCONAZOLE [Concomitant]
     Active Substance: KETOCONAZOLE
     Dosage: TWICE WEEKLY
  6. MELATONIN [Concomitant]
     Active Substance: MELATONIN
     Dosage: 3MG
  7. OLANZAPINE [Concomitant]
     Active Substance: OLANZAPINE
     Dosage: 2.5MG EVERY 6H
  8. ZYRTEC [Concomitant]
     Active Substance: CETIRIZINE HYDROCHLORIDE
     Dosage: 10MG (DAY BEFORE AND DAY OF OCREVUS, AND AS NEEDED)
  9. PEPCID [Concomitant]
     Active Substance: FAMOTIDINE
     Dosage: 20MG TWICE DAILY (DAY BEFORE AND DAY OF OCREVUS, AND AS NEEDED)
  10. VITAMIN D3 [Concomitant]
     Active Substance: CHOLECALCIFEROL
     Dosage: 125MCG DAILY
  11. BISOPROLOL [Concomitant]
     Active Substance: BISOPROLOL
     Dosage: 10MG TWICE DAILY
  12. TRAZODONE [Concomitant]
     Active Substance: TRAZODONE HYDROCHLORIDE
     Dosage: 50MG AT BEDTIME
  13. ACETAMINOPHEN [Concomitant]
     Active Substance: ACETAMINOPHEN
     Dosage: 650MG EVERY 6H AS NEEDED

REACTIONS (14)
  - Enterovirus infection [Unknown]
  - Enterovirus myocarditis [Unknown]
  - Cardiac arrest [Fatal]
  - Rash [Unknown]
  - Multiple sclerosis [Unknown]
  - COVID-19 [Recovered/Resolved]
  - Blood immunoglobulin M decreased [Unknown]
  - Maternal exposure before pregnancy [Unknown]
  - Pyrexia [Unknown]
  - Affective disorder [Unknown]
  - Uterine rupture [Unknown]
  - Haemorrhage [Unknown]
  - Schizophrenia [Unknown]
  - Weight increased [Unknown]

NARRATIVE: CASE EVENT DATE: 20210801
